FAERS Safety Report 7973573-X (Version None)
Quarter: 2011Q4

REPORT INFORMATION
  Report Type: 
  Country: None (occurrence: None)
  Receive Date: 20111213
  Receipt Date: 20111206
  Transmission Date: 20120403
  Serious: Yes (Other)
  Sender: FDA-Public Use
  Company Number: US-ALEXION-A201101812

PATIENT
  Sex: Female

DRUGS (2)
  1. SOLIRIS [Suspect]
     Indication: HAEMOLYTIC URAEMIC SYNDROME
     Dosage: 1200 MG, Q MONTH
     Route: 042
     Dates: start: 20090501
  2. SOLIRIS [Suspect]
     Dosage: 1200 MG, Q 6 WEEKS
     Route: 042
     Dates: start: 20110801

REACTIONS (1)
  - ANAPHYLACTIC REACTION [None]
